FAERS Safety Report 6406232-5 (Version None)
Quarter: 2009Q4

REPORT INFORMATION
  Report Type: 
  Country: None (occurrence: None)
  Receive Date: 20091019
  Receipt Date: 20091005
  Transmission Date: 20100525
  Serious: Yes (Hospitalization)
  Sender: FDA-Public Use
  Company Number: PHHY2009VE43186

PATIENT
  Sex: Female

DRUGS (1)
  1. ACLASTA [Suspect]
     Indication: PROPHYLAXIS
     Dosage: 5 MG/YEAR
     Dates: start: 20081101

REACTIONS (7)
  - ABDOMINAL DISCOMFORT [None]
  - CARDIAC PACEMAKER INSERTION [None]
  - FACIAL BONES FRACTURE [None]
  - FALL [None]
  - LIVER DISORDER [None]
  - PANCREATIC DISORDER [None]
  - PLATELET COUNT DECREASED [None]
